FAERS Safety Report 12539913 (Version 2)
Quarter: 2016Q3

REPORT INFORMATION
  Report Type: Spontaneous
  Country: US (occurrence: US)
  Receive Date: 20160708
  Receipt Date: 20160729
  Transmission Date: 20161109
  Serious: No
  Sender: FDA-Public Use
  Company Number: US-GLAXOSMITHKLINE-US2016GSK093213

PATIENT
  Age: 58 Year
  Sex: Female

DRUGS (2)
  1. TANZEUM [Suspect]
     Active Substance: ALBIGLUTIDE
     Indication: TYPE 2 DIABETES MELLITUS
     Dosage: 30 MG, WE
     Route: 042
     Dates: start: 201603
  2. TANZEUM [Suspect]
     Active Substance: ALBIGLUTIDE
     Dosage: 30 MG, U
     Route: 042

REACTIONS (7)
  - Peripheral swelling [Recovering/Resolving]
  - Inappropriate schedule of drug administration [Unknown]
  - Dysgeusia [Unknown]
  - Drug dose omission [Unknown]
  - Panic reaction [Unknown]
  - Device use error [Unknown]
  - Accidental overdose [Unknown]

NARRATIVE: CASE EVENT DATE: 2016
